FAERS Safety Report 7133546-6 (Version None)
Quarter: 2010Q4

REPORT INFORMATION
  Report Type: 
  Country: None (occurrence: None)
  Receive Date: 20101202
  Receipt Date: 20100407
  Transmission Date: 20110411
  Serious: Yes (Life-Threatening, Hospitalization, Other)
  Sender: FDA-Public Use
  Company Number: TN-ABBOTT-10P-160-0637561-00

PATIENT
  Age: 8 Year
  Sex: Female

DRUGS (1)
  1. SEVOFLURANE [Suspect]
     Indication: SCLEROTHERAPY
     Dosage: DOSE INTUBATION6% DOSE MAINTENANCE3%
     Route: 055
     Dates: start: 20100331, end: 20100331

REACTIONS (1)
  - GRAND MAL CONVULSION [None]
